FAERS Safety Report 10082363 (Version 1)
Quarter: 2014Q2

REPORT INFORMATION
  Report Type: Spontaneous
  Country: US (occurrence: US)
  Receive Date: 20140416
  Receipt Date: 20140416
  Transmission Date: 20141212
  Serious: Yes (Other)
  Sender: FDA-Public Use
  Company Number: US-BRISTOL-MYERS SQUIBB COMPANY-20603114

PATIENT
  Sex: Male

DRUGS (3)
  1. KENALOG-40 INJ [Suspect]
  2. RITONAVIR [Suspect]
     Indication: HIV INFECTION
  3. ECONAZOLE [Suspect]

REACTIONS (3)
  - Cushing^s syndrome [Unknown]
  - Incorrect route of drug administration [Unknown]
  - Drug interaction [Unknown]
